FAERS Safety Report 15572315 (Version 3)
Quarter: 2019Q1

REPORT INFORMATION
  Report Type: Spontaneous
  Country: CA (occurrence: CA)
  Receive Date: 20181031
  Receipt Date: 20190219
  Transmission Date: 20190417
  Serious: Yes (Other)
  Sender: FDA-Public Use
  Company Number: CA-OTSUKA-2018_013921

PATIENT
  Age: 42 Year
  Sex: Male

DRUGS (7)
  1. PALIPERIDONE. [Suspect]
     Active Substance: PALIPERIDONE
     Indication: PRODUCT USED FOR UNKNOWN INDICATION
     Dosage: UNK
     Route: 065
  2. PALIPERIDONE. [Suspect]
     Active Substance: PALIPERIDONE
     Indication: SCHIZOPHRENIA
     Dosage: UNK
     Route: 030
  3. LUVOX [Suspect]
     Active Substance: FLUVOXAMINE MALEATE
     Indication: SCHIZOPHRENIA
     Dosage: UNK
     Route: 065
  4. ABILIFY [Suspect]
     Active Substance: ARIPIPRAZOLE
     Indication: SCHIZOPHRENIA
     Dosage: UNK
     Route: 048
  5. REXULTI [Suspect]
     Active Substance: BREXPIPRAZOLE
     Indication: SCHIZOPHRENIA
     Dosage: (REXULTI 1,2,3,4 AS PER PM)
     Route: 065
  6. CLOZAPINE. [Suspect]
     Active Substance: CLOZAPINE
     Indication: SCHIZOPHRENIA
     Dosage: UNK
     Route: 065
  7. QUETIAPINE FUMARATE. [Suspect]
     Active Substance: QUETIAPINE FUMARATE
     Indication: SCHIZOPHRENIA
     Dosage: UNK
     Route: 048

REACTIONS (4)
  - Loss of libido [Recovered/Resolved]
  - Weight increased [Recovered/Resolved]
  - Psychotic disorder [Recovered/Resolved]
  - Apathy [Recovered/Resolved]

NARRATIVE: CASE EVENT DATE: 201712
